FAERS Safety Report 23242387 (Version 2)
Quarter: 2023Q4

REPORT INFORMATION
  Report Type: Spontaneous
  Country: KR (occurrence: KR)
  Receive Date: 20231129
  Receipt Date: 20231206
  Transmission Date: 20240110
  Serious: Yes (Hospitalization)
  Sender: FDA-Public Use
  Company Number: KR-PFIZER INC-202300414025

PATIENT
  Age: 56 Year
  Sex: Male

DRUGS (3)
  1. ALDACTONE [Suspect]
     Active Substance: SPIRONOLACTONE
     Indication: Autoimmune hepatitis
     Dosage: 2 DF, 1X/DAY
     Dates: start: 20230612
  2. FUROSEMIDE [Suspect]
     Active Substance: FUROSEMIDE
     Indication: Autoimmune hepatitis
     Dosage: 1 DF, 2X/DAY
     Dates: start: 20230614
  3. VANCOMYCIN HYDROCHLORIDE [Suspect]
     Active Substance: VANCOMYCIN HYDROCHLORIDE
     Indication: Autoimmune hepatitis
     Dosage: 750 MG, 2X/DAY
     Dates: start: 20230602

REACTIONS (3)
  - Acute kidney injury [Recovering/Resolving]
  - Blood creatinine increased [Recovering/Resolving]
  - Off label use [Unknown]

NARRATIVE: CASE EVENT DATE: 20230612
